FAERS Safety Report 4983030-0 (Version None)
Quarter: 2006Q2

REPORT INFORMATION
  Report Type: 
  Country: None (occurrence: None)
  Receive Date: 20060426
  Receipt Date: 20060330
  Transmission Date: 20061013
  Serious: Yes (Other)
  Sender: FDA-Public Use
  Company Number: US-SOLVAY-00206001066

PATIENT
  Age: 7416 Day
  Sex: Male
  Weight: 58.5 kg

DRUGS (12)
  1. PROMETHAZINE [Concomitant]
     Indication: NAUSEA
     Dosage: DAILY DOSE:  UNKNOWN
     Route: 065
     Dates: start: 20050707
  2. MARINOL [Suspect]
     Indication: DECREASED APPETITE
     Dosage: DAILY DOSE: 5 MILLIGRAM(S)
     Route: 048
     Dates: start: 20050601
  3. UROCIT-K [Concomitant]
     Indication: ILL-DEFINED DISORDER
     Dosage: DAILY DOSE:  UNKNOWN
     Route: 065
     Dates: start: 20010301
  4. CEP-25608 [Suspect]
     Indication: BREAKTHROUGH PAIN
     Dosage: DAILY DOSE:  UNKNOWN
     Route: 002
     Dates: start: 20050712, end: 20051019
  5. CARISPODOL [Concomitant]
     Indication: ILL-DEFINED DISORDER
     Dosage: DAILY DOSE:  UNKNOWN
     Route: 065
     Dates: start: 20050401
  6. MEPERIDINE HYDROCHLORIDE [Suspect]
     Indication: RENAL PAIN
     Dosage: DAILY DOSE:  UNKNOWN
     Route: 030
     Dates: start: 20050707
  7. DIAZEPAM [Concomitant]
     Indication: ILL-DEFINED DISORDER
     Dosage: DAILY DOSE:  UNKNOWN
     Route: 065
     Dates: start: 20030801
  8. ACTIQ [Suspect]
     Indication: RENAL PAIN
     Dosage: DAILY DOSE:  UNKNOWN
     Route: 002
     Dates: start: 20050628
  9. FENTANYL [Suspect]
     Indication: RENAL PAIN
     Dosage: DAILY DOSE:  UNKNOWN
     Route: 062
     Dates: start: 20050629
  10. MORPHINE [Suspect]
     Indication: RENAL PAIN
     Dosage: DAILY DOSE:  UNKNOWN
     Route: 030
     Dates: start: 20050801
  11. OXYCODONE HCL [Suspect]
     Indication: RENAL PAIN
     Dosage: DAILY DOSE: 60 MILLIGRAM(S)
     Route: 048
     Dates: start: 20050607
  12. HYDROMORPHONE HYDROCHLORIDE [Suspect]
     Indication: ILL-DEFINED DISORDER
     Dosage: DAILY DOSE:  UNKNOWN
     Route: 048
     Dates: start: 20050624

REACTIONS (5)
  - BLOOD POTASSIUM DECREASED [None]
  - BLOOD PROLACTIN INCREASED [None]
  - CONVULSION [None]
  - DRUG INTERACTION [None]
  - DRUG LEVEL DECREASED [None]
